FAERS Safety Report 9006089 (Version 1)
Quarter: 2013Q1

REPORT INFORMATION
  Report Type: Spontaneous
  Country: US (occurrence: US)
  Receive Date: 20130109
  Receipt Date: 20130109
  Transmission Date: 20140127
  Serious: Yes (Death)
  Sender: FDA-Public Use
  Company Number: PHHY2013US001697

PATIENT
  Age: 77 Year
  Sex: Male

DRUGS (1)
  1. ASCRIPTIN BUFFERED REG STRENGTH TABLETS [Suspect]
     Indication: RESTLESS LEGS SYNDROME
     Dosage: 2 DF, 2 TIMES PER WEEK
     Route: 048
     Dates: end: 2009

REACTIONS (1)
  - Death [Fatal]
